FAERS Safety Report 6291269-X (Version None)
Quarter: 2009Q3

REPORT INFORMATION
  Report Type: 
  Country: None (occurrence: None)
  Receive Date: 20090730
  Receipt Date: 20090724
  Transmission Date: 20100115
  Serious: Yes (Death, Hospitalization, Other)
  Sender: FDA-Public Use
  Company Number: JP-BAYER-200810857BYL

PATIENT
  Age: 67 Year
  Sex: Male
  Weight: 64 kg

DRUGS (17)
  1. NEXAVAR [Suspect]
     Indication: RENAL CELL CARCINOMA STAGE IV
     Dosage: TOTAL DAILY DOSE: 800 MG  UNIT DOSE: 200 MG
     Route: 048
     Dates: start: 20080423, end: 20080504
  2. NEXAVAR [Suspect]
     Dosage: TOTAL DAILY DOSE: 400 MG  UNIT DOSE: 200 MG
     Route: 048
     Dates: start: 20080910, end: 20080926
  3. NEXAVAR [Suspect]
     Dosage: TOTAL DAILY DOSE: 600 MG  UNIT DOSE: 200 MG
     Route: 048
     Dates: start: 20080927
  4. NEXAVAR [Suspect]
     Dosage: TOTAL DAILY DOSE: 200 MG  UNIT DOSE: 200 MG
     Route: 048
     Dates: start: 20090530
  5. NEXAVAR [Suspect]
     Dosage: UNIT DOSE: 200 MG
     Route: 048
     Dates: start: 20090331, end: 20090414
  6. NEXAVAR [Suspect]
     Dosage: TOTAL DAILY DOSE: 200 MG  UNIT DOSE: 200 MG
     Route: 048
  7. ACTOS [Concomitant]
     Indication: TYPE 2 DIABETES MELLITUS
     Route: 048
     Dates: start: 20080423
  8. ASPIRIN [Concomitant]
     Route: 048
     Dates: start: 20080423
  9. GASMOTIN [Concomitant]
     Route: 048
     Dates: start: 20080423
  10. SIGMART [Concomitant]
     Route: 048
     Dates: start: 20080423
  11. METHYCOOL [Concomitant]
     Route: 048
     Dates: start: 20080423
  12. BASEN [Concomitant]
     Indication: TYPE 2 DIABETES MELLITUS
     Route: 048
     Dates: start: 20080423
  13. URSO 250 [Concomitant]
     Route: 048
     Dates: start: 20080423
  14. TSUMURA NO.41 [Concomitant]
     Route: 048
     Dates: start: 20080423
  15. HUMALOG MIX [Concomitant]
     Route: 058
     Dates: start: 20080423
  16. ADONA [Concomitant]
     Indication: ONCOLOGIC COMPLICATION
     Route: 048
     Dates: start: 20080423
  17. TRANSAMIN [Concomitant]
     Indication: ONCOLOGIC COMPLICATION
     Route: 048
     Dates: start: 20080423

REACTIONS (5)
  - ASTHMA [None]
  - DIARRHOEA [None]
  - HYPERTENSION [None]
  - PALMAR-PLANTAR ERYTHRODYSAESTHESIA SYNDROME [None]
  - RENAL CELL CARCINOMA [None]
